FAERS Safety Report 4829325-2 (Version None)
Quarter: 2005Q4

REPORT INFORMATION
  Report Type: 
  Country: None (occurrence: None)
  Receive Date: 20051116
  Receipt Date: 20050520
  Transmission Date: 20060501
  Serious: Yes (Hospitalization, Other)
  Sender: FDA-Public Use
  Company Number: PHBS2005JP07381

PATIENT
  Age: 75 Year
  Sex: Female
  Weight: 45 kg

DRUGS (4)
  1. VOLTAREN [Suspect]
     Indication: PYREXIA
     Dosage: 25 MG/DAY
     Route: 054
     Dates: start: 20050426, end: 20050426
  2. AMINOFLUID [Concomitant]
     Indication: GASTRIC CANCER
     Dosage: 1500 ML/DAY
     Route: 042
     Dates: start: 20050419, end: 20050525
  3. HUMULIN R [Suspect]
     Indication: DIABETES MELLITUS
     Route: 058
     Dates: start: 20050409, end: 20050525
  4. NORMAL SALINE [Concomitant]
     Dates: start: 20050426

REACTIONS (8)
  - BLOOD PRESSURE DECREASED [None]
  - CHILLS [None]
  - COLD SWEAT [None]
  - HYPOGLYCAEMIA [None]
  - MALAISE [None]
  - OXYGEN SATURATION DECREASED [None]
  - SHOCK HYPOGLYCAEMIC [None]
  - VOMITING [None]
